FAERS Safety Report 10411353 (Version 2)
Quarter: 2014Q3

REPORT INFORMATION
  Report Type: Spontaneous
  Country: US (occurrence: US)
  Receive Date: 20140826
  Receipt Date: 20140905
  Transmission Date: 20150326
  Serious: Yes (Death, Hospitalization, Other)
  Sender: FDA-Public Use
  Company Number: US-AMGEN-USASP2014064712

PATIENT
  Age: 63 Year
  Sex: Female

DRUGS (24)
  1. MOBIC [Concomitant]
     Active Substance: MELOXICAM
     Dosage: 7.5 MG TAB, QD
     Route: 048
  2. DESYREL [Concomitant]
     Active Substance: TRAZODONE HYDROCHLORIDE
     Dosage: 100 MG AT BED TIME
     Route: 048
  3. WELLBUTRIN SR [Concomitant]
     Active Substance: BUPROPION HYDROCHLORIDE
     Dosage: 150 MG TABLET, BID
     Route: 048
  4. DEXILANT [Concomitant]
     Active Substance: DEXLANSOPRAZOLE
     Dosage: 60 MG, BID BEFORE MEALS
     Route: 048
  5. ARICEPT [Concomitant]
     Active Substance: DONEPEZIL HYDROCHLORIDE
     Dosage: 10 MG AT BED TIME
     Route: 048
  6. CYTOMEL [Concomitant]
     Active Substance: LIOTHYRONINE SODIUM
     Dosage: 5 MUG TAB, QD
     Route: 048
  7. ZOMETA [Concomitant]
     Active Substance: ZOLEDRONIC ACID
  8. DIAMOX                             /00016901/ [Concomitant]
     Active Substance: ACETAZOLAMIDE
     Dosage: 250 MG TABLET, TID
     Route: 048
  9. VITAMIN D3 [Concomitant]
     Active Substance: CHOLECALCIFEROL
     Dosage: 2000 UNIT, QD WITH BREAKFAST
     Route: 048
  10. CRANBERRY + VITAMIN C [Concomitant]
     Dosage: 2 DF, TID
     Route: 048
  11. DECADRON [Concomitant]
     Active Substance: DEXAMETHASONE
     Dosage: 0.5 MG/5ML ELIXIR, SWISH AND SPIT 4 TIMES A DAY AS NEEDED.
  12. NYSTAT [Concomitant]
     Active Substance: NYSTATIN
     Indication: ORAL PAIN
     Dosage: SWISH AND SPIT AS NEEDED
  13. PROLIA [Suspect]
     Active Substance: DENOSUMAB
     Indication: OSTEOPOROSIS
     Dosage: 60 MG/ML, Q6MO
     Route: 058
  14. ASPIRIN                            /00002701/ [Concomitant]
     Active Substance: ASPIRIN
     Dosage: 81 MG TABLET WITH BREAKFAST, QD
     Route: 048
  15. FEXOFENADINE [Concomitant]
     Active Substance: FEXOFENADINE\FEXOFENADINE HYDROCHLORIDE
     Indication: HYPERSENSITIVITY
     Dosage: 180 MG, QD
     Route: 048
  16. NEURONTIN [Concomitant]
     Active Substance: GABAPENTIN
     Dosage: 800 MG, TID
     Route: 048
  17. VICODIN [Concomitant]
     Active Substance: ACETAMINOPHEN\HYDROCODONE BITARTRATE
     Indication: PAIN
     Dosage: 5-500 MG TAB, 1-2 TABS AS NEEDED
     Route: 048
  18. LITHIUM [Concomitant]
     Active Substance: LITHIUM CARBONATE
     Dosage: 300 MG CAPS, QD
     Route: 048
  19. DIPHENHYDRAMIN HCL [Concomitant]
     Indication: ORAL PAIN
     Dosage: SWISH AND SPIT AS NEEDED
  20. PERCOCET [Concomitant]
     Active Substance: ACETAMINOPHEN\OXYCODONE HYDROCHLORIDE
     Indication: PAIN
     Dosage: 5-325 MG TABLET, 1 TAB Q6H AS NEEDED
     Route: 048
  21. THERA-M [Concomitant]
     Dosage: MULTIVITAMIN TABLET, QD WITH BREAKFAST
     Route: 048
  22. OSCAL D [Concomitant]
     Active Substance: CALCIUM CARBONATE\CHOLECALCIFEROL
     Dosage: 1 TABLET WITH TID MEALS
     Route: 048
  23. LIDOCAINE. [Concomitant]
     Active Substance: LIDOCAINE
     Indication: ORAL PAIN
     Dosage: SWISH AND SPIT AS NEEDED
  24. ZANTAC [Concomitant]
     Active Substance: RANITIDINE HYDROCHLORIDE
     Dosage: 150 MG, QD
     Route: 048

REACTIONS (6)
  - Hypothyroidism [Unknown]
  - Hypercalcaemia [Unknown]
  - Haemorrhage intracranial [Fatal]
  - Vomiting [Unknown]
  - Abdominal pain [Unknown]
  - Bipolar I disorder [Unknown]

NARRATIVE: CASE EVENT DATE: 20140809
